FAERS Safety Report 21139311 (Version 1)
Quarter: 2022Q3

REPORT INFORMATION
  Report Type: Spontaneous
  Country: CN (occurrence: CN)
  Receive Date: 20220727
  Receipt Date: 20220727
  Transmission Date: 20221027
  Serious: Yes (Other)
  Sender: FDA-Public Use
  Company Number: CN-PFIZER INC-PV202200029987

PATIENT
  Age: 13 Year
  Sex: Male
  Weight: 86 kg

DRUGS (3)
  1. METHYLPREDNISOLONE SODIUM SUCCINATE [Suspect]
     Active Substance: METHYLPREDNISOLONE SODIUM SUCCINATE
     Indication: Detoxification
     Dosage: 60 MG, 2X/DAY
     Route: 041
     Dates: start: 20220722, end: 20220723
  2. METHYLPREDNISOLONE SODIUM SUCCINATE [Suspect]
     Active Substance: METHYLPREDNISOLONE SODIUM SUCCINATE
     Indication: Antiviral treatment
  3. DEXTROSE [Concomitant]
     Active Substance: DEXTROSE
     Dosage: 100 ML, 2X/DAY
     Route: 041
     Dates: start: 20220722, end: 20220723

REACTIONS (10)
  - Pyrexia [Recovering/Resolving]
  - Rash erythematous [Recovering/Resolving]
  - Pruritus [Recovering/Resolving]
  - Chills [Recovering/Resolving]
  - Nausea [Recovering/Resolving]
  - Lymphadenopathy [Recovering/Resolving]
  - Mucosal hyperaemia [Recovering/Resolving]
  - Breath sounds abnormal [Recovering/Resolving]
  - Heart rate increased [Recovering/Resolving]
  - Off label use [Recovered/Resolved]

NARRATIVE: CASE EVENT DATE: 20220722
